FAERS Safety Report 18619786 (Version 1)
Quarter: 2020Q4

REPORT INFORMATION
  Report Type: Spontaneous
  Country: US (occurrence: US)
  Receive Date: 20201215
  Receipt Date: 20201215
  Transmission Date: 20210114
  Serious: No
  Sender: FDA-Public Use
  Company Number: US-PFIZER INC-2020495297

PATIENT
  Age: 45 Year
  Sex: Female

DRUGS (1)
  1. IBRANCE [Suspect]
     Active Substance: PALBOCICLIB
     Indication: BREAST NEOPLASM
     Dosage: 125 MG, CYCLIC (QD (ONCE DAILY) FOR 21 DAYS)
     Route: 048
     Dates: start: 20200905

REACTIONS (3)
  - Blood count abnormal [Unknown]
  - Epistaxis [Unknown]
  - Stomatitis [Unknown]
